FAERS Safety Report 4826178-3 (Version None)
Quarter: 2005Q4

REPORT INFORMATION
  Report Type: 
  Country: None (occurrence: None)
  Receive Date: 20051014
  Receipt Date: 20050718
  Transmission Date: 20060501
  Serious: No
  Sender: FDA-Public Use
  Company Number: 2005SP001929

PATIENT
  Age: 80 Year
  Sex: Female
  Weight: 51.7101 kg

DRUGS (3)
  1. LUNESTA [Suspect]
     Indication: INSOMNIA
     Dosage: 1MG;HS; ORAL
     Route: 048
     Dates: start: 20050708, end: 20050711
  2. AMBIEN [Concomitant]
  3. LEVOXYL [Concomitant]

REACTIONS (2)
  - DRUG INEFFECTIVE [None]
  - INSOMNIA [None]
